FAERS Safety Report 11205427 (Version 1)
Quarter: 2015Q2

REPORT INFORMATION
  Report Type: Report from Study
  Country: US (occurrence: US)
  Receive Date: 20150622
  Receipt Date: 20150622
  Transmission Date: 20150821
  Serious: Yes (Hospitalization)
  Sender: FDA-Public Use
  Company Number: US-BIOGENIDEC-2015BI082858

PATIENT
  Age: 58 Year
  Sex: Male

DRUGS (48)
  1. CLONIDINE. [Concomitant]
     Active Substance: CLONIDINE
  2. FLUTICASONE [Concomitant]
     Active Substance: FLUTICASONE\FLUTICASONE PROPIONATE
  3. FUROSEMIDE. [Concomitant]
     Active Substance: FUROSEMIDE
  4. WARFARIN [Concomitant]
     Active Substance: WARFARIN
  5. NYSTATIN. [Concomitant]
     Active Substance: NYSTATIN
  6. TIZANIDINE (TIZANIDINE) [Concomitant]
     Active Substance: TIZANIDINE
  7. AMIODARONE [Concomitant]
     Active Substance: AMIODARONE
  8. AMLODIPINE [Concomitant]
     Active Substance: AMLODIPINE BESYLATE
  9. AMOXICLAV [Concomitant]
     Active Substance: AMOXICILLIN\CLAVULANIC ACID
  10. TRAZODONE [Concomitant]
     Active Substance: TRAZODONE HYDROCHLORIDE
  11. LACTULOSE. [Concomitant]
     Active Substance: LACTULOSE
  12. MECLIZRE [Concomitant]
  13. METOPROLOL TARTRATE. [Concomitant]
     Active Substance: METOPROLOL TARTRATE
  14. TECFIDERA [Suspect]
     Active Substance: DIMETHYL FUMARATE
     Indication: MULTIPLE SCLEROSIS
     Route: 048
     Dates: start: 201310
  15. AMOXICLIN [Concomitant]
  16. KADIAN [Concomitant]
     Active Substance: MORPHINE SULFATE
  17. LACTULOSE. [Concomitant]
     Active Substance: LACTULOSE
  18. LIPITOR [Concomitant]
     Active Substance: ATORVASTATIN CALCIUM
  19. MORPHINE [Concomitant]
     Active Substance: MORPHINE
  20. DEXLANT [Concomitant]
  21. FENTANYL. [Concomitant]
     Active Substance: FENTANYL
  22. FUROSEMIDE. [Concomitant]
     Active Substance: FUROSEMIDE
  23. LEXAPRO [Concomitant]
     Active Substance: ESCITALOPRAM OXALATE
  24. LEXAPRO [Concomitant]
     Active Substance: ESCITALOPRAM OXALATE
  25. NORTRIPTYLIN [Concomitant]
     Active Substance: NORTRIPTYLINE
  26. ONDANSETRON [Concomitant]
     Active Substance: ONDANSETRON
  27. TAMSULOSIN [Concomitant]
     Active Substance: TAMSULOSIN
  28. CLONIDINE. [Concomitant]
     Active Substance: CLONIDINE
  29. LISINOPRIL. [Concomitant]
     Active Substance: LISINOPRIL
  30. METOPROLOL TARTRATE. [Concomitant]
     Active Substance: METOPROLOL TARTRATE
  31. PROTONIX [Concomitant]
     Active Substance: PANTOPRAZOLE SODIUM
  32. AMLODIPINE [Concomitant]
     Active Substance: AMLODIPINE BESYLATE
  33. COPAXONE KIT [Concomitant]
  34. GABAPENTIN. [Concomitant]
     Active Substance: GABAPENTIN
  35. HYDRALAZINE [Concomitant]
     Active Substance: HYDRALAZINE HYDROCHLORIDE
  36. KADIAN [Concomitant]
     Active Substance: MORPHINE SULFATE
  37. LEVOFLOXACIN. [Concomitant]
     Active Substance: LEVOFLOXACIN
  38. METHYLPRED [Concomitant]
     Active Substance: METHYLPREDNISOLONE
  39. METOLAZONE. [Concomitant]
     Active Substance: METOLAZONE
  40. PROPRANOLOL [Concomitant]
     Active Substance: PROPRANOLOL\PROPRANOLOL HYDROCHLORIDE
  41. SIMVASTATIN. [Concomitant]
     Active Substance: SIMVASTATIN
  42. AMBIEN [Concomitant]
     Active Substance: ZOLPIDEM TARTRATE
  43. CIPROFLOXACIN. [Concomitant]
     Active Substance: CIPROFLOXACIN
  44. FLOMAX [Concomitant]
     Active Substance: TAMSULOSIN HYDROCHLORIDE
  45. LEVOFLOXACIN. [Concomitant]
     Active Substance: LEVOFLOXACIN
  46. LORAZEPAM. [Concomitant]
     Active Substance: LORAZEPAM
  47. OXYCODONE [Concomitant]
     Active Substance: OXYCODONE
  48. ZOLPIDEM [Concomitant]
     Active Substance: ZOLPIDEM\ZOLPIDEM TARTRATE

REACTIONS (1)
  - Pneumonia [Recovered/Resolved]

NARRATIVE: CASE EVENT DATE: 20150522
